FAERS Safety Report 21342191 (Version 1)
Quarter: 2022Q3

REPORT INFORMATION
  Report Type: Spontaneous
  Country: CN (occurrence: CN)
  Receive Date: 20220916
  Receipt Date: 20220916
  Transmission Date: 20221027
  Serious: Yes (Hospitalization, Other)
  Sender: FDA-Public Use
  Company Number: CN-MSNLABS-2022MSNLIT01086

PATIENT

DRUGS (3)
  1. DECITABINE [Suspect]
     Active Substance: DECITABINE
     Indication: Acute monocytic leukaemia
     Dosage: 25 MG DAY 8 TO DAY 10
     Route: 065
  2. DAUNORUBICIN [Suspect]
     Active Substance: DAUNORUBICIN
     Indication: Acute monocytic leukaemia
     Dosage: 60 MG DAY 1 TO DAY 3
     Route: 065
  3. CYTARABINE [Suspect]
     Active Substance: CYTARABINE
     Indication: Acute monocytic leukaemia
     Dosage: 100 MG/12 H DAY 1 TO DAY 7
     Route: 065

REACTIONS (1)
  - Drug ineffective [Unknown]
